FAERS Safety Report 4916546-3 (Version None)
Quarter: 2006Q1

REPORT INFORMATION
  Report Type: 
  Country: None (occurrence: None)
  Receive Date: 20060220
  Receipt Date: 20060213
  Transmission Date: 20060701
  Serious: Yes (Other)
  Sender: FDA-Public Use
  Company Number: PHNU2006DE00906

PATIENT
  Age: 11 Year
  Sex: Female

DRUGS (2)
  1. SANDIMMUNE [Suspect]
     Indication: JUVENILE ARTHRITIS
     Dosage: 25 MG, BID
     Route: 048
     Dates: start: 20010101
  2. IMUREK [Concomitant]

REACTIONS (4)
  - DISTURBANCE IN ATTENTION [None]
  - HALLUCINATION, AUDITORY [None]
  - LOSS OF CONSCIOUSNESS [None]
  - PANIC ATTACK [None]
